FAERS Safety Report 10159976 (Version 2)
Quarter: 2015Q1

REPORT INFORMATION
  Report Type: Spontaneous
  Country: US (occurrence: US)
  Receive Date: 20140508
  Receipt Date: 20150210
  Transmission Date: 20150720
  Serious: No
  Sender: FDA-Public Use
  Company Number: US-GLAXOSMITHKLINE-A1048113A

PATIENT

DRUGS (3)
  1. TYKERB [Suspect]
     Active Substance: LAPATINIB DITOSYLATE
     Indication: NERVOUS SYSTEM DISORDER
     Dosage: 250 MG TABLET AT 1000 MG DAILY; REDUCED TO 750 MG DAILY
     Route: 048
     Dates: start: 20130822
  2. TYKERB [Suspect]
     Active Substance: LAPATINIB DITOSYLATE
     Indication: BREAST CANCER
  3. KEPPRA [Concomitant]
     Active Substance: LEVETIRACETAM

REACTIONS (7)
  - Rash [Unknown]
  - Eye swelling [Unknown]
  - Diarrhoea [Unknown]
  - Ocular hyperaemia [Unknown]
  - Acarodermatitis [Unknown]
  - Herpes zoster [Unknown]
  - Acne [Unknown]

NARRATIVE: CASE EVENT DATE: 201312
